FAERS Safety Report 4351561-2 (Version None)
Quarter: 2004Q2

REPORT INFORMATION
  Report Type: 
  Country: None (occurrence: None)
  Receive Date: 20040503
  Receipt Date: 20040423
  Transmission Date: 20050107
  Serious: Yes (Hospitalization, Disabling)
  Sender: FDA-Public Use
  Company Number: US-MERCK-0404USA02137

PATIENT
  Age: 87 Year
  Sex: Female

DRUGS (7)
  1. FOSAMAX [Suspect]
     Indication: OSTEOPOROSIS
     Route: 048
     Dates: start: 20010101, end: 20040101
  2. CEPHALEXIN [Concomitant]
     Route: 065
  3. FUROSEMIDE [Concomitant]
     Route: 065
  4. SYNTHROID [Concomitant]
     Route: 065
  5. METOPROLOL [Concomitant]
     Route: 065
  6. POTASSIUM (UNSPECIFIED) [Concomitant]
     Route: 065
  7. COUMADIN [Concomitant]
     Route: 065

REACTIONS (3)
  - CIRCULATORY COLLAPSE [None]
  - SPINAL FRACTURE [None]
  - SYNCOPE [None]
